FAERS Safety Report 24536887 (Version 1)
Quarter: 2024Q4

REPORT INFORMATION
  Report Type: Spontaneous
  Country: US (occurrence: US)
  Receive Date: 20241022
  Receipt Date: 20241022
  Transmission Date: 20250115
  Serious: No
  Sender: ASCENDIS PHARMA
  Company Number: US-ASCENDIS PHARMA-2024US005154

PATIENT

DRUGS (1)
  1. SKYTROFA [Suspect]
     Active Substance: LONAPEGSOMATROPIN-TCGD
     Indication: Hypopituitarism
     Dosage: 9.1 MILLIGRAM, WEEKLY
     Route: 058
     Dates: start: 202311

REACTIONS (2)
  - Product dose omission issue [Not Recovered/Not Resolved]
  - Needle issue [Unknown]

NARRATIVE: CASE EVENT DATE: 20240403
